FAERS Safety Report 8382252-9 (Version None)
Quarter: 2012Q2

REPORT INFORMATION
  Report Type: 
  Country: None (occurrence: None)
  Receive Date: 20120524
  Receipt Date: 20120508
  Transmission Date: 20120825
  Serious: Yes (Hospitalization, Disabling, Other)
  Sender: FDA-Public Use
  Company Number: GB-JNJFOC-20120510352

PATIENT
  Age: 68 Year
  Sex: Male

DRUGS (4)
  1. INFLIXIMAB, RECOMBINANT [Suspect]
     Indication: COLITIS
     Route: 042
     Dates: start: 20100528, end: 20101201
  2. ACETAMINOPHEN [Concomitant]
     Route: 065
  3. LANSOPRAZOLE [Concomitant]
     Route: 065
  4. ONCOTICE LYOPHILISAT [Suspect]
     Indication: BLADDER CANCER
     Route: 061
     Dates: start: 20110531, end: 20110705

REACTIONS (2)
  - GUILLAIN-BARRE SYNDROME [None]
  - BOVINE TUBERCULOSIS [None]
